FAERS Safety Report 5297973-4 (Version None)
Quarter: 2007Q2

REPORT INFORMATION
  Report Type: 
  Country: None (occurrence: None)
  Receive Date: 20070416
  Receipt Date: 20070402
  Transmission Date: 20071010
  Serious: Yes (Hospitalization, Disabling)
  Sender: FDA-Public Use
  Company Number: US-ELI_LILLY_AND_COMPANY-US200704000262

PATIENT
  Age: 80 Year
  Sex: Male
  Weight: 53.514 kg

DRUGS (2)
  1. CYMBALTA [Suspect]
     Indication: DEPRESSION
     Dosage: 30 MG, DAILY (1/D)
     Dates: start: 20060101, end: 20061101
  2. NEXIUM [Concomitant]
     Indication: OESOPHAGEAL DISORDER

REACTIONS (4)
  - ABASIA [None]
  - ASPIRATION [None]
  - LUNG INFECTION [None]
  - WEIGHT DECREASED [None]
